FAERS Safety Report 23947313 (Version 1)
Quarter: 2024Q2

REPORT INFORMATION
  Report Type: Spontaneous
  Country: US (occurrence: US)
  Receive Date: 20240606
  Receipt Date: 20240606
  Transmission Date: 20240716
  Serious: No
  Sender: FDA-Public Use
  Company Number: US-PFIZER INC-PV202400074080

PATIENT
  Age: 69 Year
  Sex: Male

DRUGS (3)
  1. NURTEC ODT [Suspect]
     Active Substance: RIMEGEPANT SULFATE
     Indication: Migraine
     Dosage: TAKE 1 TABLET BY MOUTH EVERY OTHER DAY
     Route: 048
  2. OZEMPIC [Concomitant]
     Active Substance: SEMAGLUTIDE
  3. SUMATRIPTAN [Concomitant]
     Active Substance: SUMATRIPTAN

REACTIONS (1)
  - Parosmia [Unknown]

NARRATIVE: CASE EVENT DATE: 20240501
